FAERS Safety Report 22143627 (Version 1)
Quarter: 2023Q1

REPORT INFORMATION
  Report Type: Spontaneous
  Country: US (occurrence: US)
  Receive Date: 20230327
  Receipt Date: 20230327
  Transmission Date: 20230417
  Serious: No
  Sender: FDA-Public Use
  Company Number: US-TAKEDA-2023TUS031496

PATIENT
  Age: 28 Year
  Sex: Female

DRUGS (1)
  1. VYVANSE [Suspect]
     Active Substance: LISDEXAMFETAMINE DIMESYLATE
     Indication: Binge eating
     Dosage: 10 MILLIGRAM
     Route: 065
     Dates: start: 2015

REACTIONS (2)
  - Eye pain [Unknown]
  - Head discomfort [Unknown]
